FAERS Safety Report 6139965-9 (Version None)
Quarter: 2009Q1

REPORT INFORMATION
  Report Type: 
  Country: None (occurrence: None)
  Receive Date: 20090324
  Receipt Date: 20090316
  Transmission Date: 20090719
  Serious: Yes (Other)
  Sender: FDA-Public Use
  Company Number: GXKR2009AU03443

PATIENT
  Sex: Female

DRUGS (1)
  1. AMOXICILLIN AND CLAVULANATE POTASSIUM [Suspect]
     Indication: EAR INFECTION
     Dosage: 1 DF, DAILY, ORAL
     Route: 048
     Dates: start: 20090313, end: 20090313

REACTIONS (2)
  - LETHARGY [None]
  - LOSS OF CONSCIOUSNESS [None]
